FAERS Safety Report 10066159 (Version 2)
Quarter: 2014Q2

REPORT INFORMATION
  Report Type: Spontaneous
  Country: US (occurrence: US)
  Receive Date: 20140408
  Receipt Date: 20140424
  Transmission Date: 20141212
  Serious: No
  Sender: FDA-Public Use
  Company Number: US-PFIZER INC-2014096791

PATIENT
  Age: 65 Year
  Sex: Female
  Weight: 53.97 kg

DRUGS (8)
  1. CHANTIX [Suspect]
     Indication: SMOKING CESSATION THERAPY
     Dosage: UNK
  2. CHANTIX [Suspect]
     Dosage: UNK
     Dates: start: 201402
  3. CHANTIX [Suspect]
     Dosage: STARTING PACK, AS DIRECTED
  4. CHANTIX [Suspect]
     Dosage: 1 MG, 2X/DAY
  5. ATENOLOL [Concomitant]
     Indication: HYPERTENSION
     Dosage: 50 MG, DAILY
  6. NEXIUM [Concomitant]
     Dosage: 40 MG, DAILY
  7. GEMFIBROZIL [Concomitant]
     Dosage: 600 MG, 2X/DAY
  8. NORCO [Concomitant]
     Indication: ARTHRALGIA
     Dosage: [HYDROCODONE BITARTRATE 10 MG, PARACETAMOL 325MG] AS NEEDED

REACTIONS (4)
  - Blood test abnormal [Unknown]
  - Drug ineffective [Unknown]
  - Abnormal dreams [Unknown]
  - Malaise [Unknown]
